FAERS Safety Report 14258601 (Version 3)
Quarter: 2018Q1

REPORT INFORMATION
  Report Type: Spontaneous
  Country: US (occurrence: US)
  Receive Date: 20171207
  Receipt Date: 20180103
  Transmission Date: 20180508
  Serious: No
  Sender: FDA-Public Use
  Company Number: US-BAYER-2017-237107

PATIENT
  Age: 4 Year
  Sex: Female

DRUGS (1)
  1. MIRALAX [Suspect]
     Active Substance: POLYETHYLENE GLYCOL 3350
     Indication: ENCOPRESIS
     Dosage: 1 DF, QD
     Dates: start: 20160901, end: 20171201

REACTIONS (2)
  - Incorrect drug administration duration [None]
  - Excessive eye blinking [Unknown]
